FAERS Safety Report 16456262 (Version 1)
Quarter: 2019Q3

REPORT INFORMATION
  Report Type: Spontaneous
  Country: US (occurrence: US)
  Receive Date: 20190619
  Receipt Date: 20190619
  Transmission Date: 20191004
  Serious: No
  Sender: FDA-Public Use
  Company Number: None

PATIENT
  Age: 46 Year
  Sex: Female

DRUGS (1)
  1. INJECTAFER [Suspect]
     Active Substance: FERRIC CARBOXYMALTOSE
     Indication: ANAEMIA
     Dosage: ?          OTHER FREQUENCY:DAY 1 AND DAY 8;?
     Route: 041
     Dates: start: 20190423, end: 20190430

REACTIONS (2)
  - Skin discolouration [None]
  - Injection site extravasation [None]

NARRATIVE: CASE EVENT DATE: 20190423
